FAERS Safety Report 21314613 (Version 1)
Quarter: 2022Q3

REPORT INFORMATION
  Report Type: Spontaneous
  Country: US (occurrence: None)
  Receive Date: 20220909
  Receipt Date: 20220909
  Transmission Date: 20221027
  Serious: No
  Sender: FDA-Public Use
  Company Number: US-ARIS GLOBAL-202110-1859

PATIENT
  Sex: Female

DRUGS (11)
  1. OXERVATE [Suspect]
     Active Substance: CENEGERMIN-BKBJ
     Indication: Neurotrophic keratopathy
     Route: 047
     Dates: start: 20211007
  2. TOPIRAMATE [Concomitant]
     Active Substance: TOPIRAMATE
  3. ACETAMINOPHEN\HYDROCODONE [Concomitant]
     Active Substance: ACETAMINOPHEN\HYDROCODONE
  4. SUMATRIPTAN [Concomitant]
     Active Substance: SUMATRIPTAN
  5. HYDROXYCHLOROQUINE SULFATE [Concomitant]
     Active Substance: HYDROXYCHLOROQUINE SULFATE
  6. INVELTYS [Concomitant]
     Active Substance: LOTEPREDNOL ETABONATE
  7. UPNEEQ [Concomitant]
     Active Substance: OXYMETAZOLINE HYDROCHLORIDE
  8. XIIDRA [Concomitant]
     Active Substance: LIFITEGRAST
  9. CEQUA [Concomitant]
     Active Substance: CYCLOSPORINE
  10. ZERVIATE [Concomitant]
     Active Substance: CETIRIZINE HYDROCHLORIDE
  11. RETAINE [Concomitant]
     Active Substance: HYPROMELLOSE 2910 (4000 MPA.S)
     Dosage: 0.5% - 0.5%

REACTIONS (3)
  - Eye pain [Unknown]
  - Periorbital pain [Unknown]
  - Eye discharge [Unknown]
